FAERS Safety Report 23547955 (Version 1)
Quarter: 2024Q1

REPORT INFORMATION
  Report Type: Spontaneous
  Country: US (occurrence: US)
  Receive Date: 20240221
  Receipt Date: 20240221
  Transmission Date: 20240409
  Serious: No
  Sender: FDA-Public Use
  Company Number: US-APOTEX-2023AP016745

PATIENT
  Sex: Female

DRUGS (11)
  1. ALBUTEROL [Suspect]
     Active Substance: ALBUTEROL
     Indication: Mycobacterium avium complex infection
     Dosage: UNK
     Route: 045
  2. IPRATROPIUM [Suspect]
     Active Substance: IPRATROPIUM
     Indication: Mycobacterium avium complex infection
     Dosage: UNK
     Route: 045
  3. LEVOFLOXACIN [Suspect]
     Active Substance: LEVOFLOXACIN
     Indication: Pyrexia
     Dosage: UNK
     Route: 065
  4. LEVOFLOXACIN [Suspect]
     Active Substance: LEVOFLOXACIN
     Indication: Cough
  5. BUDESONIDE [Suspect]
     Active Substance: BUDESONIDE
     Indication: Mycobacterium avium complex infection
     Dosage: UNK
     Route: 045
  6. CEFPODOXIME [Concomitant]
     Active Substance: CEFPODOXIME
     Indication: Bronchiectasis
     Dosage: UNK
     Route: 065
  7. CEFPODOXIME [Concomitant]
     Active Substance: CEFPODOXIME
     Indication: Condition aggravated
  8. ETHAMBUTOL [Concomitant]
     Active Substance: ETHAMBUTOL HYDROCHLORIDE
     Indication: Pyrexia
     Dosage: UNK
     Route: 065
  9. ETHAMBUTOL [Concomitant]
     Active Substance: ETHAMBUTOL HYDROCHLORIDE
     Indication: Cough
  10. AZITHROMYCIN [Concomitant]
     Active Substance: AZITHROMYCIN
     Indication: Pyrexia
     Dosage: UNK
     Route: 065
  11. AZITHROMYCIN [Concomitant]
     Active Substance: AZITHROMYCIN
     Indication: Cough

REACTIONS (1)
  - Diarrhoea [Unknown]
